FAERS Safety Report 25248055 (Version 1)
Quarter: 2025Q2

REPORT INFORMATION
  Report Type: Spontaneous
  Country: US (occurrence: US)
  Receive Date: 20250429
  Receipt Date: 20250429
  Transmission Date: 20250716
  Serious: Yes (Other)
  Sender: ALCON
  Company Number: US-ALCON LABORATORIES-ALC2025US002170

PATIENT
  Sex: Female

DRUGS (9)
  1. ALCAINE [Suspect]
     Active Substance: PROPARACAINE HYDROCHLORIDE
     Indication: Preoperative care
     Route: 047
  2. ALCAINE [Suspect]
     Active Substance: PROPARACAINE HYDROCHLORIDE
     Route: 047
  3. BSS [Suspect]
     Active Substance: CALCIUM CHLORIDE\MAGNESIUM CHLORIDE\POTASSIUM CHLORIDE\SODIUM ACETATE\SODIUM CHLORIDE\SODIUM CITRATE
     Indication: Product used for unknown indication
     Route: 065
  4. BETADINE [Suspect]
     Active Substance: POVIDONE-IODINE
     Indication: Preoperative care
     Route: 047
  5. BETADINE [Suspect]
     Active Substance: POVIDONE-IODINE
     Route: 047
  6. LIDOCAINE [Suspect]
     Active Substance: LIDOCAINE
     Indication: Preoperative care
  7. MOXIFLOXACIN [Suspect]
     Active Substance: MOXIFLOXACIN
     Indication: Postoperative care
     Route: 065
  8. MOXIFLOXACIN [Suspect]
     Active Substance: MOXIFLOXACIN
     Indication: Preoperative care
     Route: 065
  9. PREDNISOLONE ACETATE [Suspect]
     Active Substance: PREDNISOLONE ACETATE
     Indication: Postoperative care
     Route: 065

REACTIONS (1)
  - Toxic anterior segment syndrome [Recovered/Resolved]
